FAERS Safety Report 5974198-8 (Version None)
Quarter: 2008Q4

REPORT INFORMATION
  Report Type: 
  Country: None (occurrence: None)
  Receive Date: 20081201
  Receipt Date: 20081125
  Transmission Date: 20090506
  Serious: Yes (Death)
  Sender: FDA-Public Use
  Company Number: JP-PFIZER INC-2008059698

PATIENT
  Sex: Female
  Weight: 57.7 kg

DRUGS (15)
  1. REVATIO [Suspect]
     Indication: PULMONARY HYPERTENSION
     Route: 048
     Dates: start: 20080609, end: 20080622
  2. TRACLEER [Concomitant]
     Route: 048
  3. DORNER [Concomitant]
     Route: 048
  4. MUCOSTA [Concomitant]
     Route: 048
  5. DIGOXIN [Concomitant]
     Route: 048
  6. ARTIST [Concomitant]
     Route: 048
  7. PREDONINE [Concomitant]
     Route: 042
     Dates: end: 20080617
  8. PANSPORIN [Concomitant]
     Route: 042
     Dates: end: 20080610
  9. SULPERAZON [Concomitant]
     Route: 042
     Dates: start: 20080612
  10. CATABON [Concomitant]
     Route: 042
  11. DOBUTAMINE HYDROCHLORIDE [Concomitant]
     Route: 042
  12. MIDAZOLAM HCL [Concomitant]
     Route: 042
  13. LEPETAN [Concomitant]
     Route: 042
  14. LASIX [Concomitant]
     Route: 042
  15. HANP [Concomitant]
     Route: 042
     Dates: start: 20080610

REACTIONS (1)
  - PULMONARY HYPERTENSION [None]
